FAERS Safety Report 10335872 (Version 1)
Quarter: 2014Q3

REPORT INFORMATION
  Report Type: Spontaneous
  Country: US (occurrence: US)
  Receive Date: 20140723
  Receipt Date: 20140723
  Transmission Date: 20150326
  Serious: Yes (Life-Threatening, Hospitalization, Other)
  Sender: FDA-Public Use
  Company Number: US-BRISTOL-MYERS SQUIBB COMPANY-19182369

PATIENT
  Age: 80 Year
  Sex: Female

DRUGS (4)
  1. NIACIN. [Concomitant]
     Active Substance: NIACIN
  2. METOPROLOL [Concomitant]
     Active Substance: METOPROLOL
  3. COUMADIN [Suspect]
     Active Substance: WARFARIN SODIUM
     Indication: ATRIAL FIBRILLATION
     Dosage: 4MG:4DAYS A WEEK,6MG:3DAYS.
  4. PRAVACHOL [Concomitant]
     Active Substance: PRAVASTATIN SODIUM

REACTIONS (4)
  - Haemorrhage [Unknown]
  - Anaemia [Unknown]
  - Rectal haemorrhage [Unknown]
  - Epistaxis [Unknown]
